FAERS Safety Report 9414936 (Version 3)
Quarter: 2013Q3

REPORT INFORMATION
  Report Type: Report from Study
  Country: CA (occurrence: CA)
  Receive Date: 20130723
  Receipt Date: 20130808
  Transmission Date: 20140515
  Serious: Yes (Other)
  Sender: FDA-Public Use
  Company Number: CA-ROCHE-1190465

PATIENT
  Sex: Male
  Weight: 82 kg

DRUGS (7)
  1. RITUXAN [Suspect]
     Indication: TAKAYASU^S ARTERITIS
     Route: 042
     Dates: start: 20120622, end: 20120706
  2. RITUXAN [Suspect]
     Indication: OFF LABEL USE
  3. ACTEMRA [Suspect]
     Indication: TAKAYASU^S ARTERITIS
     Route: 042
     Dates: start: 20121025
  4. ALENDRONATE [Concomitant]
  5. PREDNISONE [Concomitant]
  6. ASA (ACETYLSALICYLIC ACID) [Concomitant]
  7. ARTHROTEC [Concomitant]

REACTIONS (2)
  - Drug ineffective [Unknown]
  - Vascular occlusion [Unknown]
